FAERS Safety Report 8048879-9 (Version None)
Quarter: 2012Q1

REPORT INFORMATION
  Report Type: 
  Country: None (occurrence: None)
  Receive Date: 20120117
  Receipt Date: 20120104
  Transmission Date: 20120608
  Serious: Yes (Hospitalization)
  Sender: FDA-Public Use
  Company Number: FR-ASTELLAS-2012US000283

PATIENT
  Sex: Female
  Weight: 52 kg

DRUGS (6)
  1. TRUVADA [Concomitant]
     Indication: PRODUCT USED FOR UNKNOWN INDICATION
     Dosage: 1 DF, UID/QD
     Route: 048
     Dates: start: 20010101
  2. FOLIC ACID [Concomitant]
     Indication: PRODUCT USED FOR UNKNOWN INDICATION
     Dosage: UNK
     Route: 065
     Dates: start: 20111101
  3. AMBISOME [Suspect]
     Dosage: 150 MG, UID/QD
     Route: 065
  4. ETRAVIRINE [Concomitant]
     Indication: PRODUCT USED FOR UNKNOWN INDICATION
     Dosage: UNK
     Route: 065
     Dates: start: 20010101
  5. AMBISOME [Suspect]
     Indication: LEISHMANIASIS
     Dosage: 200 MG, UID/QD
     Route: 042
     Dates: start: 20111219
  6. ATOVAQUONE [Concomitant]
     Indication: PRODUCT USED FOR UNKNOWN INDICATION
     Dosage: UNK
     Route: 065
     Dates: start: 20020101

REACTIONS (6)
  - CUTANEOUS VASCULITIS [None]
  - ERYTHEMA [None]
  - NAUSEA [None]
  - INFUSION RELATED REACTION [None]
  - RASH [None]
  - PYREXIA [None]
